FAERS Safety Report 11614351 (Version 3)
Quarter: 2016Q1

REPORT INFORMATION
  Report Type: Report from Study
  Country: TR (occurrence: TR)
  Receive Date: 20151009
  Receipt Date: 20160321
  Transmission Date: 20160525
  Serious: Yes (Hospitalization)
  Sender: FDA-Public Use
  Company Number: TR-ROCHE-1643611

PATIENT
  Age: 70 Year
  Sex: Male
  Weight: 71.2 kg

DRUGS (3)
  1. OBINUTUZUMAB [Suspect]
     Active Substance: OBINUTUZUMAB
     Indication: CHRONIC LYMPHOCYTIC LEUKAEMIA
     Dosage: CYCLE 1 DAY 1
     Route: 042
     Dates: start: 20150625, end: 20150625
  2. OBINUTUZUMAB [Suspect]
     Active Substance: OBINUTUZUMAB
     Dosage: CYCLE 1 DAY 2. FREQUENCY AS ONCE EVERY MONTH. ?MOST RECENT DOSE PRIOR TO SAE: 20/AUG/2015?TEMPORARIL
     Route: 042
     Dates: start: 20150626, end: 20150626
  3. IBRUTINIB [Suspect]
     Active Substance: IBRUTINIB
     Indication: CHRONIC LYMPHOCYTIC LEUKAEMIA
     Dosage: MOST RECENT DOSE PRIOR TO SAE 15/SEP/2015. DOSE DELAYED ON 16/SEP/2015.
     Route: 065
     Dates: start: 20150625, end: 20151013

REACTIONS (1)
  - Acute kidney injury [Recovered/Resolved]

NARRATIVE: CASE EVENT DATE: 20151006
